FAERS Safety Report 21464126 (Version 2)
Quarter: 2022Q4

REPORT INFORMATION
  Report Type: Report from Study
  Country: US (occurrence: US)
  Receive Date: 20221017
  Receipt Date: 20221103
  Transmission Date: 20230112
  Serious: Yes (Hospitalization, Other)
  Sender: FDA-Public Use
  Company Number: US-BoehringerIngelheim-2021-BI-112872

PATIENT
  Age: 31 Year
  Sex: Female

DRUGS (2)
  1. OFEV [Suspect]
     Active Substance: NINTEDANIB
     Indication: Idiopathic pulmonary fibrosis
     Route: 048
     Dates: start: 2019, end: 20210902
  2. OFEV [Suspect]
     Active Substance: NINTEDANIB
     Indication: Interstitial lung disease
     Route: 048
     Dates: start: 20210622

REACTIONS (17)
  - Herpes zoster [Recovering/Resolving]
  - Renal failure [Unknown]
  - Pulmonary oedema [Unknown]
  - Nausea [Recovering/Resolving]
  - Blood iron decreased [Unknown]
  - Diarrhoea [Not Recovered/Not Resolved]
  - Vomiting [Not Recovered/Not Resolved]
  - Decreased appetite [Unknown]
  - Weight decreased [Unknown]
  - Food craving [Not Recovered/Not Resolved]
  - Abdominal pain upper [Recovered/Resolved]
  - Chest pain [Not Recovered/Not Resolved]
  - Migraine [Unknown]
  - Fatigue [Unknown]
  - Food aversion [Unknown]
  - Dizziness [Unknown]
  - Hypophagia [Not Recovered/Not Resolved]

NARRATIVE: CASE EVENT DATE: 20210723
